FAERS Safety Report 22371545 (Version 1)
Quarter: 2023Q2

REPORT INFORMATION
  Report Type: Spontaneous
  Country: BE (occurrence: BE)
  Receive Date: 20230526
  Receipt Date: 20230526
  Transmission Date: 20230721
  Serious: Yes (Death, Hospitalization, Other)
  Sender: FDA-Public Use
  Company Number: BE-STERISCIENCE B.V.-2023-ST-001350

PATIENT
  Age: 74 Year
  Weight: 95 kg

DRUGS (17)
  1. PIPERACILLIN SODIUM\TAZOBACTAM SODIUM [Suspect]
     Active Substance: PIPERACILLIN SODIUM\TAZOBACTAM SODIUM
     Indication: Aspergillus infection
     Dosage: 4 GRAM, Q6H
     Route: 065
  2. CASPOFUNGIN [Suspect]
     Active Substance: CASPOFUNGIN
     Indication: Aspergillus infection
     Dosage: 70 MILLIGRAM, QD
     Route: 065
  3. AMPHOTERICIN B [Suspect]
     Active Substance: AMPHOTERICIN B
     Indication: Aspergillus infection
     Dosage: 300 MILLIGRAM, QD
     Route: 065
  4. VASOPRESSIN [Suspect]
     Active Substance: VASOPRESSIN
     Indication: Aspergillus infection
     Dosage: UNK
     Route: 065
  5. ISAVUCONAZOLE [Interacting]
     Active Substance: ISAVUCONAZOLE
     Indication: Aspergillus infection
     Dosage: 200 MILLIGRAM, Q8H, LOADING DOSE
     Route: 042
  6. ISAVUCONAZOLE [Interacting]
     Active Substance: ISAVUCONAZOLE
     Dosage: 200 MILLIGRAM, QD, MAINTENANCE DOSE FROM DAY 3
     Route: 042
  7. ISAVUCONAZOLE [Interacting]
     Active Substance: ISAVUCONAZOLE
     Dosage: 300 MILLIGRAM, ON DAY 8
     Route: 065
  8. ISAVUCONAZOLE [Interacting]
     Active Substance: ISAVUCONAZOLE
     Dosage: 500 MILLIGRAM, ON DAY 14
     Route: 065
  9. RIFABUTIN [Interacting]
     Active Substance: RIFABUTIN
     Indication: Aspergillus infection
     Dosage: UNK
     Route: 048
  10. RIFAMPIN [Interacting]
     Active Substance: RIFAMPIN
     Indication: Staphylococcal infection
     Dosage: 300 MILLIGRAM, Q8H
     Route: 042
  11. RIFAMPIN [Interacting]
     Active Substance: RIFAMPIN
     Indication: Staphylococcal sepsis
  12. VORICONAZOLE [Interacting]
     Active Substance: VORICONAZOLE
     Indication: Aspergillus infection
     Dosage: 600 MILLIGRAM, BID, LOADING DOSE ON THE FIRST DAY (12 H)
     Route: 065
  13. VORICONAZOLE [Interacting]
     Active Substance: VORICONAZOLE
     Dosage: 400 MILLIGRAM, BID (12 H), MAINTENANCE DOSE
     Route: 065
  14. FLUCLOXACILLIN [Concomitant]
     Active Substance: FLUCLOXACILLIN
     Indication: Staphylococcal infection
     Dosage: 2 GRAM, Q4H
     Route: 042
  15. FLUCLOXACILLIN [Concomitant]
     Active Substance: FLUCLOXACILLIN
     Indication: Staphylococcal sepsis
  16. GENTAMICIN [Concomitant]
     Active Substance: GENTAMICIN
     Indication: Staphylococcal infection
     Dosage: 450 MILLIGRAM, 1 DOSE
     Route: 065
  17. GENTAMICIN [Concomitant]
     Active Substance: GENTAMICIN
     Indication: Staphylococcal sepsis

REACTIONS (1)
  - Drug ineffective for unapproved indication [Fatal]
